FAERS Safety Report 8096562-6 (Version None)
Quarter: 2012Q1

REPORT INFORMATION
  Report Type: 
  Country: None (occurrence: None)
  Receive Date: 20120129
  Receipt Date: 20111216
  Transmission Date: 20120608
  Serious: No
  Sender: FDA-Public Use
  Company Number: US-ABBOTT-11P-163-0865382-00

PATIENT
  Sex: Male
  Weight: 83.99 kg

DRUGS (1)
  1. HUMIRA [Suspect]
     Indication: PSORIASIS
     Route: 058
     Dates: start: 20110223, end: 20111012

REACTIONS (4)
  - FUNGAL INFECTION [None]
  - PRURITUS [None]
  - ERYTHEMA MULTIFORME [None]
  - ADVERSE DRUG REACTION [None]
